FAERS Safety Report 4721810-7 (Version None)
Quarter: 2005Q3

REPORT INFORMATION
  Report Type: 
  Country: None (occurrence: None)
  Receive Date: 20050721
  Receipt Date: 20050425
  Transmission Date: 20060218
  Serious: No
  Sender: FDA-Public Use
  Company Number: US-BRISTOL-MYERS SQUIBB COMPANY-12945192

PATIENT
  Age: 59 Year
  Sex: Female
  Weight: 46 kg

DRUGS (5)
  1. COUMADIN [Suspect]
     Dosage: 5 MG 5 DAYS PER WEEK AND 2 MG 2 DAYS PER WEEK
  2. PRANDIN [Concomitant]
  3. METFORMIN HCL [Concomitant]
  4. ALTACE [Concomitant]
  5. PRAVACHOL [Concomitant]

REACTIONS (1)
  - INTERNATIONAL NORMALISED RATIO DECREASED [None]
